FAERS Safety Report 22969917 (Version 5)
Quarter: 2025Q3

REPORT INFORMATION
  Report Type: Report from Study
  Country: CA (occurrence: CA)
  Receive Date: 20230922
  Receipt Date: 20250819
  Transmission Date: 20251021
  Serious: Yes (Hospitalization, Other)
  Sender: SANDOZ
  Company Number: CA-002147023-NVSC2022CA211844

PATIENT
  Sex: Female

DRUGS (7)
  1. HYRIMOZ [Suspect]
     Active Substance: ADALIMUMAB-ADAZ
     Indication: Crohn^s disease
     Dosage: 40 MG, ONCE WEEKLY
     Route: 058
     Dates: start: 20210723
  2. HYRIMOZ [Suspect]
     Active Substance: ADALIMUMAB-ADAZ
     Route: 058
     Dates: start: 20220819
  3. HYRIMOZ [Suspect]
     Active Substance: ADALIMUMAB-ADAZ
     Route: 058
     Dates: start: 20220916
  4. HYRIMOZ [Suspect]
     Active Substance: ADALIMUMAB-ADAZ
     Route: 065
  5. PREDNISONE [Suspect]
     Active Substance: PREDNISONE
     Indication: Product used for unknown indication
     Dosage: 30 MG, QD (6 TABS) (AUGUST 3-8 HOSPITAL)
     Route: 065
     Dates: start: 20220803, end: 20220808
  6. PREDNISONE [Suspect]
     Active Substance: PREDNISONE
     Dosage: 30 MG, QD (SEPT 6-9 (MD PRESCRIBED)
     Route: 065
     Dates: start: 20220906, end: 20220909
  7. CHOLESTYRAMINE [Concomitant]
     Active Substance: CHOLESTYRAMINE
     Indication: Crohn^s disease
     Route: 065

REACTIONS (10)
  - Weight decreased [Unknown]
  - Respiratory tract infection [Unknown]
  - Nausea [Unknown]
  - Crohn^s disease [Unknown]
  - Renal disorder [Unknown]
  - Anal skin tags [Unknown]
  - Diarrhoea [Unknown]
  - Arthralgia [Unknown]
  - Pruritus [Unknown]
  - Off label use [Unknown]
